FAERS Safety Report 13756883 (Version 2)
Quarter: 2018Q1

REPORT INFORMATION
  Report Type: Spontaneous
  Country: US (occurrence: US)
  Receive Date: 20170714
  Receipt Date: 20180102
  Transmission Date: 20180508
  Serious: Yes (Hospitalization, Other)
  Sender: FDA-Public Use
  Company Number: US-ACTELION-A-US2017-156616

PATIENT
  Age: 62 Year
  Sex: Female

DRUGS (22)
  1. VITAMIN C [Concomitant]
     Active Substance: ASCORBIC ACID
  2. DEXAMETHASONE. [Concomitant]
     Active Substance: DEXAMETHASONE
  3. K-TAB [Concomitant]
     Active Substance: POTASSIUM CHLORIDE
  4. LORAZEPAM. [Concomitant]
     Active Substance: LORAZEPAM
  5. SOOLANTRA [Concomitant]
     Active Substance: IVERMECTIN
  6. FLUTICASONE. [Concomitant]
     Active Substance: FLUTICASONE
  7. OMEPRAZOLE. [Concomitant]
     Active Substance: OMEPRAZOLE
  8. ADCIRCA [Concomitant]
     Active Substance: TADALAFIL
  9. ASPIRIN. [Concomitant]
     Active Substance: ASPIRIN
  10. CALCIFEROL [Concomitant]
     Active Substance: ERGOCALCIFEROL
  11. DARZALEX [Concomitant]
     Active Substance: DARATUMUMAB
  12. LEVETIRACETAM. [Concomitant]
     Active Substance: LEVETIRACETAM
  13. REVLIMID [Concomitant]
     Active Substance: LENALIDOMIDE
  14. ACYCLOVIR. [Concomitant]
     Active Substance: ACYCLOVIR
  15. AFRIN [Concomitant]
     Active Substance: OXYMETAZOLINE
  16. MULTIVITAMIN AND MINERAL SUPPLEMENT [Concomitant]
     Active Substance: MINERALS\VITAMINS
  17. VITAMIN B12 [Concomitant]
     Active Substance: CYANOCOBALAMIN
  18. FUROSEMIDE. [Concomitant]
     Active Substance: FUROSEMIDE
  19. LOSARTAN. [Concomitant]
     Active Substance: LOSARTAN
  20. MAGNESIUM OXIDE. [Concomitant]
     Active Substance: MAGNESIUM OXIDE
  21. OPSUMIT [Suspect]
     Active Substance: MACITENTAN
     Indication: PULMONARY HYPERTENSION
     Dosage: 10 MG, QD
     Route: 048
     Dates: start: 20170515
  22. SINGULAIR [Concomitant]
     Active Substance: MONTELUKAST SODIUM

REACTIONS (1)
  - Stem cell transplant [Unknown]
